FAERS Safety Report 15190347 (Version 1)
Quarter: 2018Q3

REPORT INFORMATION
  Report Type: Spontaneous
  Country: US (occurrence: US)
  Receive Date: 20180625
  Receipt Date: 20180625
  Transmission Date: 20181010
  Serious: No
  Sender: FDA-Public Use
  Company Number: None

PATIENT
  Age: 42 Year
  Sex: Female
  Weight: 93.15 kg

DRUGS (3)
  1. LUPRON [Concomitant]
     Active Substance: LEUPROLIDE ACETATE
     Dates: start: 20170101
  2. XELJANZ [Suspect]
     Active Substance: TOFACITINIB CITRATE
     Indication: BLOOD DISORDER
     Route: 048
     Dates: start: 20180621, end: 20180625
  3. METHYLPREDNISOLONE. [Concomitant]
     Active Substance: METHYLPREDNISOLONE
     Dates: start: 20180417

REACTIONS (4)
  - Aggression [None]
  - Suicidal ideation [None]
  - Mania [None]
  - Ventricular extrasystoles [None]

NARRATIVE: CASE EVENT DATE: 20180625
